FAERS Safety Report 7924927-9 (Version None)
Quarter: 2011Q4

REPORT INFORMATION
  Report Type: 
  Country: None (occurrence: None)
  Receive Date: 20111118
  Receipt Date: 20110330
  Transmission Date: 20120403
  Serious: No
  Sender: FDA-Public Use
  Company Number: US-AMGEN-USASP2011017241

PATIENT
  Age: 70 Year
  Sex: Male

DRUGS (3)
  1. ENBREL [Suspect]
     Indication: PSORIATIC ARTHROPATHY
     Dosage: 50 MG, QWK
     Dates: start: 20110328
  2. ENBREL [Suspect]
     Indication: PSORIASIS
  3. TREXALL [Concomitant]
     Dates: start: 20100301

REACTIONS (1)
  - PRURITUS GENERALISED [None]
